FAERS Safety Report 6118953-2 (Version None)
Quarter: 2009Q1

REPORT INFORMATION
  Report Type: 
  Country: None (occurrence: None)
  Receive Date: 20090316
  Receipt Date: 20090213
  Transmission Date: 20090719
  Serious: No
  Sender: FDA-Public Use
  Company Number: US-BAYER-200913770NA

PATIENT
  Sex: Male

DRUGS (1)
  1. CIPROFLOXACIN HCL [Suspect]
     Indication: DRUG USE FOR UNKNOWN INDICATION
     Dosage: UNIT DOSE: 500 MG
     Dates: start: 20090206

REACTIONS (1)
  - ABNORMAL FAECES [None]
